FAERS Safety Report 24048216 (Version 7)
Quarter: 2024Q3

REPORT INFORMATION
  Report Type: Report from Study
  Country: US (occurrence: US)
  Receive Date: 20240703
  Receipt Date: 20240903
  Transmission Date: 20241016
  Serious: Yes (Hospitalization, Other)
  Sender: ASTELLAS
  Company Number: US-ASTELLAS-2024US018377

PATIENT
  Age: 57 Year
  Sex: Female

DRUGS (1)
  1. FEZOLINETANT [Suspect]
     Active Substance: FEZOLINETANT
     Indication: Menopausal symptoms
     Dosage: 45 MG, ONCE DAILY
     Route: 048
     Dates: start: 202405, end: 20240606

REACTIONS (4)
  - Colitis [Recovering/Resolving]
  - Liver function test increased [Unknown]
  - Dehydration [Unknown]
  - Back pain [Unknown]

NARRATIVE: CASE EVENT DATE: 20240613
